FAERS Safety Report 26139791 (Version 1)
Quarter: 2025Q4

REPORT INFORMATION
  Report Type: Spontaneous
  Country: US (occurrence: US)
  Receive Date: 20251210
  Receipt Date: 20251210
  Transmission Date: 20260118
  Serious: No
  Sender: AMNEAL
  Company Number: US-AMNEAL PHARMACEUTICALS-2025-AMRX-03526

PATIENT

DRUGS (1)
  1. BUMETANIDE [Suspect]
     Active Substance: BUMETANIDE
     Indication: Product used for unknown indication
     Dosage: 2 MILLIGRAM, 2 /DAY
     Route: 048

REACTIONS (4)
  - Pollakiuria [Recovered/Resolved]
  - Urine flow decreased [Recovered/Resolved]
  - Weight increased [Recovered/Resolved]
  - Product substitution issue [Unknown]
